FAERS Safety Report 6756348-9 (Version None)
Quarter: 2010Q2

REPORT INFORMATION
  Report Type: 
  Country: None (occurrence: None)
  Receive Date: 20100604
  Receipt Date: 20100526
  Transmission Date: 20101027
  Serious: Yes (Hospitalization)
  Sender: FDA-Public Use
  Company Number: GB-ROCHE-705291

PATIENT
  Sex: Female
  Weight: 68.9 kg

DRUGS (2)
  1. CAPECITABINE [Suspect]
     Indication: COLORECTAL CANCER
     Dosage: DATE OF MOST RECENT DOSE GIVEN: 25 MAY 2010, FREQUENCY: BD, 25% DOSE REDUCTION
     Route: 048
     Dates: start: 20100401
  2. BEVACIZUMAB [Suspect]
     Indication: COLORECTAL CANCER
     Dosage: DOSAGE FORM: INFUSION, DATE MOST RECENT DOSE GIVEN: 13 MAY 2010
     Route: 042
     Dates: start: 20100401

REACTIONS (1)
  - INTESTINAL OBSTRUCTION [None]
